FAERS Safety Report 8235455-8 (Version None)
Quarter: 2012Q1

REPORT INFORMATION
  Report Type: 
  Country: None (occurrence: None)
  Receive Date: 20120326
  Receipt Date: 20120321
  Transmission Date: 20120608
  Serious: Yes (Other)
  Sender: FDA-Public Use
  Company Number: PHHY2012CN011149

PATIENT

DRUGS (18)
  1. STAVUDINE [Concomitant]
     Indication: ANTIRETROVIRAL THERAPY
  2. CYTARABINE [Suspect]
     Indication: LYMPHOMA
  3. IFOSFAMIDE [Suspect]
     Indication: LYMPHOMA
  4. METHOTREXATE [Suspect]
     Indication: LYMPHOMA
  5. LEUCOVORIN CALCIUM [Suspect]
     Indication: LYMPHOMA
  6. ETOPOSIDE [Suspect]
     Indication: LYMPHOMA
  7. PIRARUBICIN [Suspect]
     Indication: LYMPHOMA
  8. ZIDOVUDINE [Concomitant]
     Indication: ANTIRETROVIRAL THERAPY
  9. PREDNISONE [Suspect]
     Indication: LYMPHOMA
  10. DEXAMETHASONE [Suspect]
     Indication: LYMPHOMA
  11. RITUXIMAB [Suspect]
     Indication: LYMPHOMA
  12. LAMIVUDINE (EPIVIR HBV) [Concomitant]
     Indication: ANTIRETROVIRAL THERAPY
  13. NEVIRAPINE [Concomitant]
     Indication: ANTIRETROVIRAL THERAPY
  14. VINCRISTINE [Suspect]
     Indication: LYMPHOMA
  15. CYCLOPHOSPHAMIDE [Suspect]
  16. MESNA [Suspect]
     Indication: LYMPHOMA
  17. DOXORUBICIN HCL [Suspect]
     Indication: LYMPHOMA
  18. MITOXANTRONE [Suspect]
     Indication: LYMPHOMA

REACTIONS (13)
  - CENTRAL NERVOUS SYSTEM INFECTION [None]
  - FUNGAL INFECTION [None]
  - MENINGITIS CRYPTOCOCCAL [None]
  - TUBERCULOSIS [None]
  - RENAL IMPAIRMENT [None]
  - PANCREATITIS ACUTE [None]
  - SKIN INFECTION [None]
  - CANDIDIASIS [None]
  - GASTROINTESTINAL HAEMORRHAGE [None]
  - BONE MARROW FAILURE [None]
  - LUNG INFECTION [None]
  - PNEUMOCOCCAL SEPSIS [None]
  - FUNGAL SEPSIS [None]
